FAERS Safety Report 11844159 (Version 1)
Quarter: 2015Q4

REPORT INFORMATION
  Report Type: Other
  Country: US (occurrence: US)
  Receive Date: 20151217
  Receipt Date: 20151217
  Transmission Date: 20160305
  Serious: Yes (Other)
  Sender: FDA-Public Use
  Company Number: US-IROKO PHARMACEUTICALS LLC-IND1-US-2013-0035

PATIENT
  Sex: Female

DRUGS (1)
  1. INDOCIN [Suspect]
     Active Substance: INDOMETHACIN\INDOMETHACIN SODIUM
     Indication: PRODUCT USED FOR UNKNOWN INDICATION
     Route: 048

REACTIONS (2)
  - Hypertension [Not Recovered/Not Resolved]
  - Gastrointestinal ulcer haemorrhage [Not Recovered/Not Resolved]
